FAERS Safety Report 4413917-9 (Version None)
Quarter: 2004Q3

REPORT INFORMATION
  Report Type: 
  Country: None (occurrence: None)
  Receive Date: 20040729
  Receipt Date: 20040726
  Transmission Date: 20050211
  Serious: Yes (Hospitalization, Other)
  Sender: FDA-Public Use
  Company Number: DEWYE927226JUL04

PATIENT
  Sex: Male

DRUGS (2)
  1. RAPAMUNE [Suspect]
     Indication: PROPHYLAXIS AGAINST TRANSPLANT REJECTION
  2. CORTICOSTEROIDS     (CORTICOSTEROIDS) [Concomitant]

REACTIONS (2)
  - PROTEINURIA [None]
  - RENAL FAILURE [None]
